FAERS Safety Report 6365085-4 (Version None)
Quarter: 2009Q3

REPORT INFORMATION
  Report Type: 
  Country: None (occurrence: None)
  Receive Date: 20090919
  Receipt Date: 20090807
  Transmission Date: 20100115
  Serious: Yes (Hospitalization)
  Sender: FDA-Public Use
  Company Number: US-ABBOTT-09P-163-0589920-00

PATIENT
  Sex: Female
  Weight: 79.45 kg

DRUGS (5)
  1. HUMIRA [Suspect]
     Indication: RHEUMATOID ARTHRITIS
     Route: 058
     Dates: start: 20080809, end: 20090601
  2. PREDNISONE [Concomitant]
     Indication: DRUG USE FOR UNKNOWN INDICATION
  3. METHOTREXATE [Concomitant]
     Indication: DRUG USE FOR UNKNOWN INDICATION
  4. FOLIC ACID [Concomitant]
     Indication: DRUG USE FOR UNKNOWN INDICATION
  5. UNKNOWN ANTIBIOTICS [Concomitant]
     Indication: DRUG USE FOR UNKNOWN INDICATION

REACTIONS (2)
  - INFLUENZA [None]
  - KIDNEY INFECTION [None]
